FAERS Safety Report 24760366 (Version 2)
Quarter: 2025Q4

REPORT INFORMATION
  Report Type: Other
  Country: GB (occurrence: GB)
  Receive Date: 20241220
  Receipt Date: 20251124
  Transmission Date: 20260118
  Serious: Yes (Other)
  Sender: BIOCON
  Company Number: None

PATIENT

DRUGS (7)
  1. ADALIMUMAB [Interacting]
     Active Substance: ADALIMUMAB
     Indication: Rheumatoid arthritis
     Dosage: UNK (SUSPENSION FOR INJECTION)
     Route: 065
  2. ADALIMUMAB [Interacting]
     Active Substance: ADALIMUMAB
  3. ADALIMUMAB [Interacting]
     Active Substance: ADALIMUMAB
  4. ADALIMUMAB [Interacting]
     Active Substance: ADALIMUMAB
  5. ADALIMUMAB [Interacting]
     Active Substance: ADALIMUMAB
  6. DESOGESTREL [Interacting]
     Active Substance: DESOGESTREL
     Indication: Contraception
     Dosage: UNK
     Route: 065
  7. FOLIC ACID [Concomitant]
     Active Substance: FOLIC ACID
     Indication: Vitamin supplementation
     Dosage: UNK
     Route: 065

REACTIONS (4)
  - Drug interaction [Unknown]
  - Pregnancy [Unknown]
  - Maternal exposure during pregnancy [Unknown]
  - Drug ineffective [Unknown]

NARRATIVE: CASE EVENT DATE: 20231201
